FAERS Safety Report 4658340-7 (Version None)
Quarter: 2005Q2

REPORT INFORMATION
  Report Type: 
  Country: None (occurrence: None)
  Receive Date: 20050511
  Receipt Date: 20050427
  Transmission Date: 20051028
  Serious: Yes (Hospitalization, Other)
  Sender: FDA-Public Use
  Company Number: GB-JNJFOC-20050406592

PATIENT
  Sex: Female
  Weight: 58 kg

DRUGS (8)
  1. REMICADE [Suspect]
     Indication: RHEUMATOID ARTHRITIS
     Route: 042
  2. PREDNISOLONE [Concomitant]
  3. ARTHROTEC [Concomitant]
  4. ARTHROTEC [Concomitant]
  5. FRUMIL [Concomitant]
  6. FRUMIL [Concomitant]
  7. CALCICHEW [Concomitant]
  8. FOSAMAX [Concomitant]

REACTIONS (2)
  - FALL [None]
  - HIP FRACTURE [None]
